FAERS Safety Report 6899980-4 (Version None)
Quarter: 2010Q3

REPORT INFORMATION
  Report Type: 
  Country: None (occurrence: None)
  Receive Date: 20100803
  Receipt Date: 20100723
  Transmission Date: 20110219
  Serious: Yes (Hospitalization, Other)
  Sender: FDA-Public Use
  Company Number: GB-SANOFI-AVENTIS-2010SA043520

PATIENT
  Age: 63 Year
  Weight: 80 kg

DRUGS (7)
  1. FEXOFENADINE HCL [Suspect]
     Route: 065
  2. ALLOPURINOL [Suspect]
     Indication: GOUT
     Route: 048
     Dates: end: 20100706
  3. ALFACALCIDOL [Concomitant]
     Indication: RENAL IMPAIRMENT
     Route: 048
  4. AMLODIPINE [Concomitant]
     Indication: HYPERTENSION
     Route: 048
  5. LISINOPRIL [Concomitant]
     Indication: HYPERTENSION
     Dosage: DOSAGE IS 30, UNITS UNKNOWN
     Route: 002
  6. LISINOPRIL [Concomitant]
     Dosage: DOSAGE IS 30, UNITS UNKNOWN
     Route: 002
  7. TEARS NATURALE [Concomitant]
     Route: 065

REACTIONS (4)
  - OEDEMA MOUTH [None]
  - ORAL PAIN [None]
  - RASH [None]
  - SWELLING FACE [None]
